FAERS Safety Report 12549223 (Version 1)
Quarter: 2016Q3

REPORT INFORMATION
  Report Type: Spontaneous
  Country: CN (occurrence: CN)
  Receive Date: 20160712
  Receipt Date: 20160712
  Transmission Date: 20161109
  Serious: Yes (Other)
  Sender: FDA-Public Use
  Company Number: CN-PFIZER INC-2016335052

PATIENT
  Age: 58 Year
  Sex: Male

DRUGS (1)
  1. VFEND [Suspect]
     Active Substance: VORICONAZOLE
     Indication: LUNG INFECTION
     Dosage: 200 MG, 2X/DAY
     Route: 041
     Dates: start: 20160208, end: 20160212

REACTIONS (5)
  - Memory impairment [Recovering/Resolving]
  - Halo vision [Recovered/Resolved]
  - Hallucination, visual [Recovered/Resolved]
  - Cognitive disorder [Recovering/Resolving]
  - Hallucination, auditory [Recovered/Resolved]

NARRATIVE: CASE EVENT DATE: 20160214
